FAERS Safety Report 11595970 (Version 3)
Quarter: 2019Q3

REPORT INFORMATION
  Report Type: Spontaneous
  Country: US (occurrence: US)
  Receive Date: 20151006
  Receipt Date: 20190911
  Transmission Date: 20191004
  Serious: No
  Sender: FDA-Public Use
  Company Number: US-PFIZER INC-2015332130

PATIENT
  Age: 53 Year
  Sex: Female
  Weight: 136 kg

DRUGS (3)
  1. LYRICA [Suspect]
     Active Substance: PREGABALIN
     Indication: ARTHRALGIA
     Dosage: 100 MG, 3X/DAY
     Route: 048
     Dates: start: 2015
  2. SERTRALINE HCL [Concomitant]
     Active Substance: SERTRALINE HYDROCHLORIDE
     Dosage: 100 MG, DAILY
  3. LEVOTHYROXINE. [Concomitant]
     Active Substance: LEVOTHYROXINE
     Dosage: 75 UG, DAILY

REACTIONS (3)
  - Product use in unapproved indication [Unknown]
  - Pain [Unknown]
  - Off label use [Unknown]

NARRATIVE: CASE EVENT DATE: 2015
